FAERS Safety Report 15255711 (Version 11)
Quarter: 2023Q4

REPORT INFORMATION
  Report Type: Spontaneous
  Country: US (occurrence: US)
  Receive Date: 20180808
  Receipt Date: 20231121
  Transmission Date: 20240110
  Serious: Yes (Hospitalization, Other)
  Sender: FDA-Public Use
  Company Number: US-PFIZER INC-2018315250

PATIENT
  Age: 69 Year
  Sex: Male
  Weight: 90.72 kg

DRUGS (30)
  1. BOSULIF [Suspect]
     Active Substance: BOSUTINIB MONOHYDRATE
     Indication: Chronic myeloid leukaemia
     Dosage: 400 MG, DAILY
     Dates: start: 20180624
  2. BOSULIF [Suspect]
     Active Substance: BOSUTINIB MONOHYDRATE
     Dosage: 400 MG, 1X/DAY
     Route: 048
  3. BOSULIF [Suspect]
     Active Substance: BOSUTINIB MONOHYDRATE
     Dosage: 400 MG, 1X/DAY
     Route: 048
     Dates: start: 201806
  4. BOSULIF [Suspect]
     Active Substance: BOSUTINIB MONOHYDRATE
     Dosage: 400 MG, DAILY
     Route: 048
  5. BOSULIF [Suspect]
     Active Substance: BOSUTINIB MONOHYDRATE
     Dosage: 300 MG, DAILY, (TAKE 3 (100 MG) TABLETS BY MOUTH DAILY WITH FOOD./TAKE 3 TABS PO (PER ORAL) QD
     Route: 048
  6. BOSULIF [Suspect]
     Active Substance: BOSUTINIB MONOHYDRATE
     Dosage: 400 MG
  7. ROSUVASTATIN CALCIUM [Concomitant]
     Active Substance: ROSUVASTATIN CALCIUM
     Indication: Hyperlipidaemia
     Dosage: 40 MG, 1X/DAY (EVERY EVENING)
  8. TRAVATAN Z [Concomitant]
     Active Substance: TRAVOPROST
     Indication: Glaucoma
     Dosage: 1 GTT (IN EACH EYE), 1X/DAY (IN THE EVENING)
  9. MINERALS\VITAMINS [Concomitant]
     Active Substance: MINERALS\VITAMINS
     Dosage: UNK
  10. ONDANSETRON HYDROCHLORIDE [Concomitant]
     Active Substance: ONDANSETRON HYDROCHLORIDE
     Dosage: 4 MG
  11. TRAVOPROST 1 A PHARMA [Concomitant]
     Dosage: 0.004 %
  12. LOSARTAN POTASSIUM [Concomitant]
     Active Substance: LOSARTAN POTASSIUM
     Dosage: 100 MG
  13. METRONIDAZOLE [Concomitant]
     Active Substance: METRONIDAZOLE
     Dosage: UNK, WEEKLY
     Route: 061
  14. NORVASC [Concomitant]
     Active Substance: AMLODIPINE BESYLATE
     Dosage: 5 MG
  15. ERYTHROCIN STEARATE [Concomitant]
     Active Substance: ERYTHROMYCIN STEARATE
     Dosage: 250 MG
  16. DICYCLOMINE HYDROCHLORIDE [Concomitant]
     Active Substance: DICYCLOMINE HYDROCHLORIDE
     Dosage: 10 MG
  17. FLUOROURACIL [Concomitant]
     Active Substance: FLUOROURACIL
     Dosage: UNK
  18. TRIAMCINOLONE ACETONIDE [Concomitant]
     Active Substance: TRIAMCINOLONE ACETONIDE
     Dosage: UNK
  19. CELECOXIB [Concomitant]
     Active Substance: CELECOXIB
     Dosage: 100 MG
  20. FAMOTIDINE [Concomitant]
     Active Substance: FAMOTIDINE
     Dosage: UNK
  21. TRAMADOL [Concomitant]
     Active Substance: TRAMADOL\TRAMADOL HYDROCHLORIDE
     Dosage: 50 MG
  22. PROCHLORPERAZINE EDISYLATE [Concomitant]
     Active Substance: PROCHLORPERAZINE EDISYLATE
     Dosage: UNK
  23. CLINDAMYCIN [Concomitant]
     Active Substance: CLINDAMYCIN
     Dosage: UNK
  24. BENZOYL PEROXIDE [Concomitant]
     Active Substance: BENZOYL PEROXIDE
     Dosage: UNK
  25. CLARITIN-D NOS [Concomitant]
     Active Substance: LORATADINE\PSEUDOEPHEDRINE SULFATE
     Dosage: UNK
  26. CRESTOR [Concomitant]
     Active Substance: ROSUVASTATIN CALCIUM
     Dosage: 10 MG
  27. MAXZIDE [Concomitant]
     Active Substance: HYDROCHLOROTHIAZIDE\TRIAMTERENE
     Dosage: (25 MG 37.5-25 MG )
  28. PROCHLORPERAZINE EDISYLATE [Concomitant]
     Active Substance: PROCHLORPERAZINE EDISYLATE
     Dosage: 10 MG
  29. GABAPENTIN [Concomitant]
     Active Substance: GABAPENTIN
     Dosage: UNK
  30. FLUTICASONE FUROATE\VILANTEROL TRIFENATATE [Concomitant]
     Active Substance: FLUTICASONE FUROATE\VILANTEROL TRIFENATATE
     Dosage: 100-25MCG BLST W/DEV

REACTIONS (30)
  - Illness [Unknown]
  - Sepsis [Unknown]
  - Pneumonia [Unknown]
  - Dehydration [Unknown]
  - Diarrhoea [Unknown]
  - Loss of consciousness [Unknown]
  - Dementia [Unknown]
  - Influenza [Unknown]
  - Fall [Unknown]
  - Dizziness [Unknown]
  - Vertigo positional [Unknown]
  - Respiratory tract infection [Unknown]
  - Chylothorax [Unknown]
  - Clostridium difficile infection [Unknown]
  - Crohn^s disease [Unknown]
  - Internal haemorrhage [Unknown]
  - Gastric haemorrhage [Unknown]
  - Anaemia [Unknown]
  - Gastritis [Unknown]
  - Epigastric discomfort [Unknown]
  - Product dose omission in error [Unknown]
  - Neoplasm progression [Unknown]
  - Infection [Unknown]
  - Nausea [Unknown]
  - Headache [Unknown]
  - Influenza like illness [Unknown]
  - Myalgia [Unknown]
  - Constipation [Unknown]
  - Abdominal discomfort [Unknown]
  - Inflammation [Unknown]

NARRATIVE: CASE EVENT DATE: 20181227
